FAERS Safety Report 20303255 (Version 1)
Quarter: 2022Q1

REPORT INFORMATION
  Report Type: Report from Study
  Country: US (occurrence: US)
  Receive Date: 20220106
  Receipt Date: 20220106
  Transmission Date: 20220423
  Serious: Yes (Other)
  Sender: FDA-Public Use
  Company Number: US-GILEAD-2021-0563665

PATIENT
  Age: 58 Year

DRUGS (1)
  1. EMTRICITABINE\TENOFOVIR DISOPROXIL FUMARATE [Suspect]
     Active Substance: EMTRICITABINE\TENOFOVIR DISOPROXIL FUMARATE
     Indication: Chronic hepatitis B
     Dosage: 500 MG, QD
     Route: 048
     Dates: start: 20111121

REACTIONS (8)
  - Drug ineffective [Unknown]
  - Hepatic fibrosis [Unknown]
  - Post-traumatic stress disorder [Unknown]
  - Generalised anxiety disorder [Unknown]
  - Panic attack [Unknown]
  - Agoraphobia [Unknown]
  - Kyphosis [Unknown]
  - Off label use [Recovering/Resolving]

NARRATIVE: CASE EVENT DATE: 20111229
